FAERS Safety Report 18419517 (Version 1)
Quarter: 2020Q4

REPORT INFORMATION
  Report Type: Spontaneous
  Country: US (occurrence: US)
  Receive Date: 20201023
  Receipt Date: 20201023
  Transmission Date: 20210114
  Serious: No
  Sender: FDA-Public Use
  Company Number: US-TEVA-2020-US-1841086

PATIENT
  Age: 54 Year
  Sex: Male

DRUGS (2)
  1. CLONAZEPAM TEVA [Suspect]
     Active Substance: CLONAZEPAM
     Indication: PANIC ATTACK
  2. CLONAZEPAM TEVA [Suspect]
     Active Substance: CLONAZEPAM
     Indication: ANXIETY
     Route: 065

REACTIONS (5)
  - Amnesia [Unknown]
  - Pollakiuria [Unknown]
  - Product substitution issue [Unknown]
  - Drug ineffective [Unknown]
  - Insomnia [Unknown]
